FAERS Safety Report 7629688-9 (Version None)
Quarter: 2011Q3

REPORT INFORMATION
  Report Type: 
  Country: None (occurrence: None)
  Receive Date: 20110715
  Receipt Date: 20110705
  Transmission Date: 20111222
  Serious: Yes (Hospitalization)
  Sender: FDA-Public Use
  Company Number: 1000022067

PATIENT
  Age: 77 Year
  Sex: Female
  Weight: 95 kg

DRUGS (13)
  1. LANZOR (LANSOPRAZOLE) (LANSOPRAZOLE) [Concomitant]
  2. NEBIVOLOL HCL [Suspect]
     Dosage: 2.5 MG (2.5 MG, 1 IN 1 D), ORAL
     Route: 048
     Dates: start: 20091201, end: 20100101
  3. CORVASAL (MOLSIDOMINE) (MOLSIDOMINE) [Concomitant]
  4. COLCHIMAX (COCHICINE, PAPAVER SOMNIFERUM POWDER, TIEMONIUM METHYL SULP [Suspect]
     Dosage: ORAL
     Route: 048
     Dates: start: 20100101
  5. ASPEGIC (ACETYLSALICYLIC ACID) (ACETYLSALIC ACID) [Concomitant]
  6. PLAVIX [Suspect]
     Dosage: 75 MG (75 MG, 1 IN 1 D), ORAL
     Route: 048
     Dates: start: 20091201, end: 20100101
  7. RASILEZ (ALISKIREN FUMARATE) [Suspect]
     Dosage: 300 MG (300 MG, 1 IN 1 D), ORAL
     Route: 048
     Dates: start: 20091201, end: 20100101
  8. ATORVASTATIN CALCIUM [Suspect]
     Dosage: 10 MG (10 MG, 1 IN 1 D), ORAL 80 MG (80 MG, 1 IN 1 D), ORAL
     Route: 048
     Dates: end: 20091101
  9. ATORVASTATIN CALCIUM [Suspect]
     Dosage: 10 MG (10 MG, 1 IN 1 D), ORAL 80 MG (80 MG, 1 IN 1 D), ORAL
     Route: 048
     Dates: start: 20091201, end: 20100101
  10. TILDIEM (DILTIAZEM HYDROCHLORIDE) (DILTIAZEM HYDROCHLORIDE) [Concomitant]
  11. IKOREL (NICORANDIL) (NICORANDIL) [Concomitant]
  12. SOLUPRED (PRENISOLONE) (PREDNISOLONE) [Concomitant]
  13. AMLODIPINE [Concomitant]

REACTIONS (6)
  - GASTROINTESTINAL DISORDER [None]
  - HEPATIC FIBROSIS [None]
  - DIARRHOEA [None]
  - CHOLESTATIC LIVER INJURY [None]
  - ABDOMINAL PAIN [None]
  - WEIGHT DECREASED [None]
